FAERS Safety Report 4765226-6 (Version None)
Quarter: 2005Q3

REPORT INFORMATION
  Report Type: 
  Country: None (occurrence: None)
  Receive Date: 20050909
  Receipt Date: 20050901
  Transmission Date: 20060218
  Serious: Yes (Hospitalization)
  Sender: FDA-Public Use
  Company Number: FR-MERCK-0509FRA00003

PATIENT
  Age: 52 Year
  Sex: Female
  Weight: 83 kg

DRUGS (10)
  1. FOSAMAX [Suspect]
     Indication: OSTEOPOROSIS
     Route: 048
     Dates: start: 20050310, end: 20050310
  2. OMEPRAZOLE [Concomitant]
     Route: 048
  3. REPAGLINIDE [Concomitant]
     Indication: DIABETES MELLITUS
     Route: 048
  4. AMINOPHYLLINE [Concomitant]
     Indication: PULMONARY EOSINOPHILIA
     Route: 048
  5. FORMOTEROL FUMARATE [Concomitant]
     Indication: PULMONARY EOSINOPHILIA
     Route: 055
  6. FLUTICASONE PROPIONATE [Concomitant]
     Route: 055
  7. MOMETASONE FUROATE [Concomitant]
     Route: 065
  8. PREDNISOLONE SODIUM METASULFOBENZOATE [Concomitant]
     Route: 065
  9. ACETAMINOPHEN AND CAFFEINE AND PROPOXYPHENE HYDROCHLORIDE [Concomitant]
     Route: 065
  10. CALCIUM CARBONATE AND CHOLECALCIFEROL [Concomitant]
     Route: 065

REACTIONS (2)
  - BLOOD CREATINE PHOSPHOKINASE INCREASED [None]
  - POLYMYALGIA [None]
